FAERS Safety Report 6097041-8 (Version None)
Quarter: 2009Q1

REPORT INFORMATION
  Report Type: 
  Country: None (occurrence: None)
  Receive Date: 20090227
  Receipt Date: 20090224
  Transmission Date: 20090719
  Serious: Yes (Death, Hospitalization)
  Sender: FDA-Public Use
  Company Number: PHHY2009CZ06524

PATIENT
  Sex: Male

DRUGS (10)
  1. LEPONEX [Suspect]
     Indication: SCHIZOPHRENIA
     Dosage: 25 MG, 1 TABLET, 1/2 TABLET FOLLOWED BY 1 TABLET
     Route: 048
     Dates: end: 20090213
  2. AKINETON [Concomitant]
  3. PARALEN [Concomitant]
  4. DOXYBENE [Concomitant]
  5. AXETIN [Concomitant]
  6. MAXIPIME [Concomitant]
  7. MYCOMAX [Concomitant]
  8. CIPRINOL [Concomitant]
  9. IBALGIN [Concomitant]
  10. NEUPOGEN [Concomitant]

REACTIONS (5)
  - AGRANULOCYTOSIS [None]
  - BONE MARROW FAILURE [None]
  - FEBRILE NEUTROPENIA [None]
  - MULTI-ORGAN FAILURE [None]
  - SEPSIS [None]
